FAERS Safety Report 4445132-7 (Version None)
Quarter: 2004Q3

REPORT INFORMATION
  Report Type: 
  Country: None (occurrence: None)
  Receive Date: 20040907
  Receipt Date: 20040820
  Transmission Date: 20050211
  Serious: Yes (Death)
  Sender: FDA-Public Use
  Company Number: L04-ESP-03962-06

PATIENT
  Age: 75 Year
  Sex: Female

DRUGS (2)
  1. CITALOPRAM [Suspect]
  2. MIRTAZAPINE [Concomitant]

REACTIONS (1)
  - COMPLETED SUICIDE [None]
